FAERS Safety Report 14431753 (Version 2)
Quarter: 2019Q1

REPORT INFORMATION
  Report Type: Spontaneous
  Country: NL (occurrence: NL)
  Receive Date: 20180124
  Receipt Date: 20190127
  Transmission Date: 20190417
  Serious: Yes (Hospitalization)
  Sender: FDA-Public Use
  Company Number: PHHY2017NL058706

PATIENT
  Sex: Female

DRUGS (4)
  1. COSENTYX [Interacting]
     Active Substance: SECUKINUMAB
     Dosage: 1 DF (1X PER 2 MONTHS)
     Route: 065
  2. ETHINYLESTRADIOL+LEVONORGESTREL [Interacting]
     Active Substance: ETHINYL ESTRADIOL\LEVONORGESTREL
     Indication: CONTRACEPTION
     Dosage: 1 DF, UNK
     Route: 048
  3. COSENTYX [Suspect]
     Active Substance: SECUKINUMAB
     Indication: PSORIASIS
     Dosage: UNK
     Route: 065
  4. COSENTYX [Interacting]
     Active Substance: SECUKINUMAB
     Dosage: UNK
     Route: 065
     Dates: start: 20170404

REACTIONS (6)
  - Delivery [Unknown]
  - Normal newborn [Unknown]
  - Placental disorder [Recovered/Resolved]
  - Maternal exposure during pregnancy [Unknown]
  - Inappropriate schedule of product administration [Unknown]
  - Drug interaction [Unknown]
